FAERS Safety Report 21945358 (Version 4)
Quarter: 2023Q1

REPORT INFORMATION
  Report Type: Spontaneous
  Country: US (occurrence: US)
  Receive Date: 20230202
  Receipt Date: 20230320
  Transmission Date: 20230417
  Serious: Yes (Other)
  Sender: FDA-Public Use
  Company Number: US-PFIZER INC-202300045948

PATIENT
  Age: 69 Year
  Sex: Female
  Weight: 52.16 kg

DRUGS (2)
  1. ESTRING [Suspect]
     Active Substance: ESTRADIOL
     Indication: Vulvovaginal dryness
     Dosage: 2 MG (2MG VAGINAL RING TO BE INSERT FOR 3 MONTHS)
     Dates: start: 202209
  2. ESTRING [Suspect]
     Active Substance: ESTRADIOL
     Indication: Menopause

REACTIONS (4)
  - Vulvovaginal injury [Not Recovered/Not Resolved]
  - Drug ineffective [Unknown]
  - Therapeutic response shortened [Unknown]
  - Malaise [Unknown]
